FAERS Safety Report 4363271-6 (Version None)
Quarter: 2004Q2

REPORT INFORMATION
  Report Type: 
  Country: None (occurrence: None)
  Receive Date: 20040517
  Receipt Date: 20040120
  Transmission Date: 20050107
  Serious: No
  Sender: FDA-Public Use
  Company Number: S04-USA-00269-01

PATIENT
  Age: 78 Year
  Sex: Female

DRUGS (9)
  1. NAMENDA [Suspect]
     Indication: DEMENTIA ALZHEIMER'S TYPE
     Dosage: 10 MG QD PO
     Route: 048
     Dates: start: 20040117
  2. NAMENDA [Suspect]
     Indication: DEMENTIA ALZHEIMER'S TYPE
     Dosage: 5 MG QD PO
     Route: 048
     Dates: start: 20040110, end: 20040116
  3. SYNTHROID [Concomitant]
  4. ARICEPT [Concomitant]
  5. ATENOLOL [Concomitant]
  6. MICARDIS (TELMISARTAN) [Concomitant]
  7. QUININE [Concomitant]
  8. DYACIRC (ISRADIPINE) [Concomitant]
  9. CHLORIAZEPOXIDE [Concomitant]

REACTIONS (2)
  - JOINT SWELLING [None]
  - OEDEMA PERIPHERAL [None]
